FAERS Safety Report 8916806 (Version 1)
Quarter: 2012Q4

REPORT INFORMATION
  Report Type: 
  Country: US (occurrence: US)
  Receive Date: 20121120
  Receipt Date: 20121120
  Transmission Date: 20130627
  Serious: No
  Sender: FDA-Public Use
  Company Number: US-PFIZER INC-2012286827

PATIENT
  Age: 59 Year
  Sex: Female
  Weight: 74.83 kg

DRUGS (2)
  1. SUTENT [Suspect]
     Dosage: 25 mg, 1x/day
     Dates: end: 2010
  2. SUTENT [Suspect]
     Indication: RENAL CELL CARCINOMA
     Dosage: 50 mg, 1x/day
     Dates: start: 2008

REACTIONS (2)
  - Renal cell carcinoma [Unknown]
  - Disease progression [Unknown]
